FAERS Safety Report 9139620 (Version 1)
Quarter: 2013Q1

REPORT INFORMATION
  Report Type: Spontaneous
  Country: MX (occurrence: MX)
  Receive Date: 20130305
  Receipt Date: 20130305
  Transmission Date: 20140127
  Serious: Yes (Death)
  Sender: FDA-Public Use
  Company Number: PHHY2013MX021228

PATIENT
  Age: 62 Year
  Sex: Female

DRUGS (1)
  1. CO-DIOVAN [Suspect]
     Indication: HYPERTENSION
     Dosage: 1 DF (80MG VALS/12.5MG HCT), DAILY
     Route: 048
     Dates: start: 1998

REACTIONS (1)
  - Cardio-respiratory arrest [Fatal]
